FAERS Safety Report 12904549 (Version 1)
Quarter: 2016Q4

REPORT INFORMATION
  Report Type: Spontaneous
  Country: FR (occurrence: FR)
  Receive Date: 20161102
  Receipt Date: 20161102
  Transmission Date: 20170207
  Serious: Yes (Hospitalization)
  Sender: FDA-Public Use
  Company Number: FR-SA-2016SA195830

PATIENT
  Age: 79 Year
  Sex: Female

DRUGS (10)
  1. PLAVIX [Suspect]
     Active Substance: CLOPIDOGREL BISULFATE
     Route: 048
     Dates: start: 2013, end: 20161005
  2. MADOPAR [Suspect]
     Active Substance: BENSERAZIDE HYDROCHLORIDE\LEVODOPA
     Indication: PARKINSONISM
     Route: 048
     Dates: start: 201406, end: 20161005
  3. AZOPT [Concomitant]
     Active Substance: BRINZOLAMIDE
     Indication: GLAUCOMA
     Route: 047
     Dates: start: 2014
  4. MOVICOL [Concomitant]
     Active Substance: POLYETHYLENE GLYCOL 3350\POTASSIUM CHLORIDE\SODIUM BICARBONATE\SODIUM CHLORIDE
     Indication: CONSTIPATION
     Route: 048
     Dates: start: 201404
  5. UVEDOSE [Concomitant]
     Active Substance: CHOLECALCIFEROL
  6. NORSET [Suspect]
     Active Substance: MIRTAZAPINE
     Indication: DEPRESSION
     Dosage: STRENGTH: 30 MG
     Route: 048
     Dates: start: 201402, end: 20161002
  7. ARTELAC [Concomitant]
     Active Substance: HYPROMELLOSES
     Indication: DRY EYE
     Route: 047
  8. KEPPRA [Concomitant]
     Active Substance: LEVETIRACETAM
     Indication: EPILEPSY
     Route: 048
     Dates: start: 201406
  9. LANSOYL [Suspect]
     Active Substance: MINERAL OIL
     Indication: CONSTIPATION
     Route: 048
     Dates: end: 20161001
  10. MYCOSTER [Concomitant]
     Active Substance: CICLOPIROX\CICLOPIROX OLAMINE

REACTIONS (5)
  - Transaminases increased [Recovered/Resolved]
  - Eosinophilia [Recovering/Resolving]
  - Gamma-glutamyltransferase increased [Recovered/Resolved]
  - Rash [Recovering/Resolving]
  - Hyperthermia [Recovered/Resolved]

NARRATIVE: CASE EVENT DATE: 20160928
